FAERS Safety Report 12484493 (Version 17)
Quarter: 2017Q4

REPORT INFORMATION
  Report Type: Report from Study
  Country: CA (occurrence: CA)
  Receive Date: 20160621
  Receipt Date: 20171223
  Transmission Date: 20180320
  Serious: Yes (Hospitalization, Other)
  Sender: FDA-Public Use
  Company Number: PHHY2016CA046596

PATIENT
  Age: 77 Year
  Sex: Female

DRUGS (3)
  1. MICARDIS [Concomitant]
     Active Substance: TELMISARTAN
     Indication: PRODUCT USED FOR UNKNOWN INDICATION
     Route: 065
  2. SANDOSTATIN [Suspect]
     Active Substance: OCTREOTIDE ACETATE
     Indication: NEUROENDOCRINE CARCINOMA METASTATIC
     Dosage: IN MCG, BID
     Route: 058
     Dates: start: 20160109, end: 20160128
  3. SANDOSTATIN LAR DEPOT [Suspect]
     Active Substance: OCTREOTIDE ACETATE
     Indication: NEUROENDOCRINE CARCINOMA METASTATIC
     Dosage: 20 MG, QMO (EVERY 4 WEEKS)
     Route: 030
     Dates: start: 20160114

REACTIONS (21)
  - Haematochezia [Unknown]
  - Renal impairment [Unknown]
  - Blood pressure diastolic increased [Unknown]
  - Nausea [Unknown]
  - Malaise [Unknown]
  - Vomiting [Recovered/Resolved]
  - Blood pressure increased [Recovering/Resolving]
  - Anxiety [Unknown]
  - Diarrhoea [Recovered/Resolved]
  - Sepsis [Unknown]
  - Metastases to liver [Unknown]
  - Decreased appetite [Recovering/Resolving]
  - Fatigue [Unknown]
  - Injection site pain [Unknown]
  - Malignant neoplasm progression [Unknown]
  - Diarrhoea haemorrhagic [Recovered/Resolved]
  - Haemorrhoids [Unknown]
  - Gastrointestinal motility disorder [Unknown]
  - Abdominal pain [Unknown]
  - Eating disorder [Recovering/Resolving]
  - Blood pressure systolic increased [Unknown]

NARRATIVE: CASE EVENT DATE: 20160406
